FAERS Safety Report 23518328 (Version 3)
Quarter: 2024Q4

REPORT INFORMATION
  Report Type: Report from Study
  Country: CA (occurrence: CA)
  Receive Date: 20240213
  Receipt Date: 20241112
  Transmission Date: 20250115
  Serious: Yes (Hospitalization, Other)
  Sender: GENMAB
  Company Number: CA-ABBVIE-5625002

PATIENT
  Age: 73 Year
  Sex: Male
  Weight: 86 kg

DRUGS (6)
  1. EPCORITAMAB [Suspect]
     Active Substance: EPCORITAMAB
     Indication: Diffuse large B-cell lymphoma
     Dosage: 48 MG 4 MG/0.8 ML - VIAL (SINGLE-USE), FREQUENCY TEXT: DAYS 1,8,15, 22 (CYCLE 1)
     Route: 058
     Dates: start: 20240110, end: 20240216
  2. EPCORITAMAB [Suspect]
     Active Substance: EPCORITAMAB
     Dosage: DOSE DECREASED
     Route: 058
     Dates: start: 202402
  3. PREDNISONE [Concomitant]
     Active Substance: PREDNISONE
     Indication: Pain
     Dosage: 100 MILLIGRAM, QD
     Dates: start: 20240110
  4. HYDROCORTISONE [Concomitant]
     Active Substance: HYDROCORTISONE
     Indication: Pain
     Dosage: FREQUENCY: EVERY 48 HOURS
     Dates: start: 20240110
  5. VALACYCLOVIR HYDROCHLORIDE [Concomitant]
     Active Substance: VALACYCLOVIR HYDROCHLORIDE
     Indication: Pain
     Dosage: FREQUENCY: 2/DAYS
     Dates: start: 20240110
  6. SEPTRA [Concomitant]
     Active Substance: SULFAMETHOXAZOLE\TRIMETHOPRIM
     Indication: Pain
     Dosage: FREQUENCY TEXT: EVERY MONDAY, WEDNESDAY FREQUENCY: FRIDAY
     Dates: start: 20240110

REACTIONS (8)
  - Abdominal pain [Not Recovered/Not Resolved]
  - Pain [Unknown]
  - Diffuse large B-cell lymphoma [Unknown]
  - Pyrexia [Recovered/Resolved]
  - Pleural effusion [Unknown]
  - Osteolysis [Unknown]
  - Hypophagia [Unknown]
  - Back pain [Unknown]

NARRATIVE: CASE EVENT DATE: 20240101
